FAERS Safety Report 8847657 (Version 1)
Quarter: 2012Q4

REPORT INFORMATION
  Report Type: 
  Country: GB (occurrence: GB)
  Receive Date: 20121018
  Receipt Date: 20121018
  Transmission Date: 20130627
  Serious: Yes (Other)
  Sender: FDA-Public Use
  Company Number: GB-VERTEX PHARMACEUTICAL INC.-2012-023192

PATIENT
  Age: 54 Year
  Sex: Male
  Weight: 74.2 kg

DRUGS (5)
  1. INCIVO [Suspect]
     Indication: HEPATITIS C
     Dosage: Dosage Form: Tablet
     Route: 048
     Dates: start: 20120820
  2. REBETOL [Suspect]
     Indication: HEPATITIS
     Dosage: Dosage Form: Unspecified
     Route: 048
     Dates: start: 20120820
  3. VIRAFERONPEG [Suspect]
     Indication: HEPATITIS
     Dosage: Dosage Form: Injection
     Route: 058
     Dates: start: 20120820
  4. RALTEGRAVIR [Concomitant]
     Indication: PRODUCT USED FOR UNKNOWN INDICATION
     Dosage: Dosage Form: Unspecified
     Route: 065
  5. TRUVADA [Concomitant]
     Indication: PRODUCT USED FOR UNKNOWN INDICATION
     Dosage: Dosage Form: Unspecified
     Route: 065

REACTIONS (3)
  - Hyperaesthesia [Not Recovered/Not Resolved]
  - Insomnia [Not Recovered/Not Resolved]
  - Paraesthesia [Not Recovered/Not Resolved]
